FAERS Safety Report 5172275-5 (Version None)
Quarter: 2006Q4

REPORT INFORMATION
  Report Type: 
  Country: None (occurrence: None)
  Receive Date: 20061213
  Receipt Date: 20051025
  Transmission Date: 20070319
  Serious: Yes (Death, Life-Threatening, Hospitalization, Other)
  Sender: FDA-Public Use
  Company Number: US-AMGEN-US155583

PATIENT
  Sex: Female

DRUGS (5)
  1. NEULASTA [Suspect]
     Indication: CHEMOTHERAPY
     Route: 058
     Dates: start: 20050813, end: 20050924
  2. FLUOROURACIL [Suspect]
     Route: 042
     Dates: start: 20050531, end: 20050923
  3. OXALIPLATIN [Suspect]
     Route: 042
     Dates: start: 20050531, end: 20050921
  4. LEUCOVORIN CALCIUM [Suspect]
     Route: 042
     Dates: start: 20050531, end: 20050921
  5. COUMADIN [Concomitant]
     Route: 065
     Dates: start: 20050525, end: 20050925

REACTIONS (12)
  - ANOXIC ENCEPHALOPATHY [None]
  - ARRHYTHMIA [None]
  - ARTERIAL THROMBOSIS LIMB [None]
  - CARDIAC ARREST [None]
  - CEREBRAL ISCHAEMIA [None]
  - PERITONEAL HAEMORRHAGE [None]
  - PNEUMONITIS [None]
  - RENAL FAILURE ACUTE [None]
  - SPLENIC INFARCTION [None]
  - SPLENIC RUPTURE [None]
  - SPLENOMEGALY [None]
  - THROMBOCYTOPENIA [None]
